FAERS Safety Report 6300513-1 (Version None)
Quarter: 2009Q3

REPORT INFORMATION
  Report Type: 
  Country: None (occurrence: None)
  Receive Date: 20090806
  Receipt Date: 20090106
  Transmission Date: 20100115
  Serious: No
  Sender: FDA-Public Use
  Company Number: US-ABBOTT-09P-163-0496082-00

PATIENT
  Sex: Male
  Weight: 163.44 kg

DRUGS (1)
  1. DEPAKOTE ER [Suspect]
     Indication: BIPOLAR DISORDER
     Dosage: 500MG IN MORNING, 1500MG IN EVENING
     Dates: start: 20080101

REACTIONS (3)
  - INCREASED APPETITE [None]
  - IRRITABILITY [None]
  - OVERWEIGHT [None]
